FAERS Safety Report 14318656 (Version 1)
Quarter: 2017Q4

REPORT INFORMATION
  Report Type: Spontaneous
  Country: JP (occurrence: JP)
  Receive Date: 20171222
  Receipt Date: 20171222
  Transmission Date: 20180321
  Serious: Yes (Death, Other)
  Sender: FDA-Public Use
  Company Number: JP-BAXTER-2017BAX043519

PATIENT
  Age: 33 Year
  Sex: Female

DRUGS (6)
  1. CARBOPLATIN. [Suspect]
     Active Substance: CARBOPLATIN
     Indication: GANGLIONEUROBLASTOMA
     Route: 065
  2. DACARBAZINE. [Suspect]
     Active Substance: DACARBAZINE
     Indication: GANGLIONEUROBLASTOMA
     Route: 065
  3. PIRARUBICIN HYDROCHLORIDE [Suspect]
     Active Substance: PIRARUBICIN HYDROCHLORIDE
     Indication: GANGLIONEUROBLASTOMA
     Route: 065
  4. ENDOXAN LYOPHILISAT [Suspect]
     Active Substance: CYCLOPHOSPHAMIDE
     Indication: GANGLIONEUROBLASTOMA
     Dosage: WITH A TOTAL DOSE OF 23.6 G/M2.
     Route: 065
  5. CELLTOP 50 MG, CAPSULE [Suspect]
     Active Substance: ETOPOSIDE
     Indication: GANGLIONEUROBLASTOMA
     Route: 065
  6. CISPLATIN. [Suspect]
     Active Substance: CISPLATIN
     Indication: GANGLIONEUROBLASTOMA
     Route: 065

REACTIONS (3)
  - Metastases to peritoneum [Unknown]
  - Gastric cancer [Fatal]
  - Second primary malignancy [Fatal]
